FAERS Safety Report 19027093 (Version 3)
Quarter: 2021Q2

REPORT INFORMATION
  Report Type: Report from Study
  Country: AU (occurrence: AU)
  Receive Date: 20210318
  Receipt Date: 20210429
  Transmission Date: 20210717
  Serious: No
  Sender: FDA-Public Use
  Company Number: AU-TOLMAR, INC.-21AU025933

PATIENT
  Age: 68 Year
  Sex: Male

DRUGS (1)
  1. ELIGARD [Suspect]
     Active Substance: LEUPROLIDE ACETATE
     Indication: PROSTATE CANCER
     Dosage: 7.5 MG, Q 1 MONTH
     Route: 065
     Dates: start: 20201202

REACTIONS (4)
  - Fall [Unknown]
  - Emotional disorder [Unknown]
  - Pruritus [Not Recovered/Not Resolved]
  - Feeling of body temperature change [Unknown]

NARRATIVE: CASE EVENT DATE: 20210225
